FAERS Safety Report 24864222 (Version 1)
Quarter: 2025Q1

REPORT INFORMATION
  Report Type: Spontaneous
  Country: US (occurrence: US)
  Receive Date: 20250120
  Receipt Date: 20250120
  Transmission Date: 20250408
  Serious: No
  Sender: DR REDDYS
  Company Number: US-DRL-USA-USA/2025/01/000688

PATIENT
  Age: 78 Year
  Sex: Male

DRUGS (4)
  1. DISOPYRAMIDE PHOSPHATE [Suspect]
     Active Substance: DISOPYRAMIDE PHOSPHATE
     Indication: Hypertrophic cardiomyopathy
     Dosage: 150 MG TWICE DAILY
  2. DISOPYRAMIDE PHOSPHATE [Suspect]
     Active Substance: DISOPYRAMIDE PHOSPHATE
     Dosage: DECREASE TO 150 MG DAILY FOR 10 DAYS
  3. MAVACAMTEN [Suspect]
     Active Substance: MAVACAMTEN
     Indication: Hypertrophic cardiomyopathy
     Dosage: 5 MG DAILY
  4. VERAPAMIL [Concomitant]
     Active Substance: VERAPAMIL HYDROCHLORIDE
     Indication: Hypertrophic cardiomyopathy
     Dosage: VERAPAMIL 180 MG DAILY

REACTIONS (3)
  - Drug interaction [Unknown]
  - Product use in unapproved indication [Unknown]
  - Product use issue [Unknown]
